FAERS Safety Report 9500108 (Version 1)
Quarter: 2013Q1

REPORT INFORMATION
  Report Type: Spontaneous
  Country: US (occurrence: None)
  Receive Date: 20130129
  Receipt Date: 20130129
  Transmission Date: 20140127
  Serious: Yes (Other)
  Sender: FDA-Public Use
  Company Number: 1000030774

PATIENT
  Sex: Female

DRUGS (1)
  1. BYSTOLIC [Suspect]
     Dates: start: 2008

REACTIONS (1)
  - Myocardial infarction [None]
